FAERS Safety Report 9196030 (Version 4)
Quarter: 2013Q4

REPORT INFORMATION
  Report Type: Report from Study
  Country: CA (occurrence: CA)
  Receive Date: 20130328
  Receipt Date: 20131014
  Transmission Date: 20140711
  Serious: Yes (Other)
  Sender: FDA-Public Use
  Company Number: CA-JNJFOC-20130312041

PATIENT
  Age: 25 Year
  Sex: Male
  Weight: 75 kg

DRUGS (4)
  1. REMICADE [Suspect]
     Indication: CROHN^S DISEASE
     Route: 042
     Dates: start: 20110111
  2. REMICADE [Suspect]
     Indication: CROHN^S DISEASE
     Route: 042
     Dates: end: 20130419
  3. REMICADE [Suspect]
     Indication: CROHN^S DISEASE
     Route: 042
  4. REMICADE [Suspect]
     Indication: CROHN^S DISEASE
     Dosage: INFUSION #17
     Route: 042
     Dates: start: 20130318, end: 20130318

REACTIONS (13)
  - Ocular hyperaemia [Recovered/Resolved]
  - Weight decreased [Recovered/Resolved]
  - Diarrhoea haemorrhagic [Recovered/Resolved]
  - Infusion related reaction [Recovered/Resolved]
  - Abdominal pain [Recovered/Resolved]
  - Erythema [Recovered/Resolved]
  - Hot flush [Recovered/Resolved]
  - Swelling face [Recovered/Resolved]
  - Throat tightness [Recovered/Resolved]
  - Chest discomfort [Recovered/Resolved]
  - Fatigue [Recovered/Resolved]
  - Cough [Recovered/Resolved]
  - Muscle spasms [Recovered/Resolved]
